FAERS Safety Report 9893811 (Version 1)
Quarter: 2014Q1

REPORT INFORMATION
  Report Type: Spontaneous
  Country: BE (occurrence: BE)
  Receive Date: 20140213
  Receipt Date: 20140213
  Transmission Date: 20141002
  Serious: Yes (Other)
  Sender: FDA-Public Use
  Company Number: BE-B.I. PHARMACEUTICALS,INC./RIDGEFIELD-2014-BI-05428GD

PATIENT
  Age: 81 Year
  Sex: Male

DRUGS (7)
  1. PRAMIPEXOLE [Suspect]
     Indication: PARKINSON^S DISEASE
     Dosage: 2.1 MG
     Route: 048
  2. PRAMIPEXOLE [Suspect]
     Dosage: 1.05 MG
  3. LEVODOPA [Suspect]
     Indication: PARKINSON^S DISEASE
     Dosage: 250 MG
     Route: 048
  4. LEVODOPA [Suspect]
     Dosage: 750 MG
  5. VENLAFAXINE [Suspect]
     Indication: PRODUCT USED FOR UNKNOWN INDICATION
     Dosage: 150 MG
     Route: 048
  6. ESCITALOPRAM [Suspect]
     Indication: PRODUCT USED FOR UNKNOWN INDICATION
     Dosage: 10 MG
     Route: 048
  7. ISOSOURCE ENERGY [Suspect]
     Indication: ENTERAL NUTRITION
     Dosage: 20 ML/H (PROTEIN CONTENT: 6.1 G/100 ML)

REACTIONS (6)
  - Parkinsonism hyperpyrexia syndrome [Recovered/Resolved]
  - Pyrexia [Recovered/Resolved]
  - Altered state of consciousness [Recovered/Resolved]
  - Hypertonia [Recovered/Resolved]
  - Food interaction [Recovered/Resolved]
  - Hallucination [Unknown]
